FAERS Safety Report 21559579 (Version 2)
Quarter: 2023Q1

REPORT INFORMATION
  Report Type: Spontaneous
  Country: JP (occurrence: JP)
  Receive Date: 20221107
  Receipt Date: 20230221
  Transmission Date: 20230418
  Serious: Yes (Other)
  Sender: FDA-Public Use
  Company Number: JP-TAKEDA-2022TJP076555

PATIENT

DRUGS (1)
  1. ZEJULA [Suspect]
     Active Substance: NIRAPARIB
     Indication: Ovarian cancer
     Dosage: 200 MILLIGRAM, QD
     Route: 048
     Dates: start: 20220425

REACTIONS (2)
  - Interstitial lung disease [Unknown]
  - Pulmonary fibrosis [Unknown]

NARRATIVE: CASE EVENT DATE: 20221031
